FAERS Safety Report 17679474 (Version 1)
Quarter: 2020Q2

REPORT INFORMATION
  Report Type: Spontaneous
  Country: JP (occurrence: JP)
  Receive Date: 20200417
  Receipt Date: 20200417
  Transmission Date: 20200714
  Serious: Yes (Other)
  Sender: FDA-Public Use
  Company Number: JP-STRIDES ARCOLAB LIMITED-2019SP000401

PATIENT
  Age: 16 Year
  Sex: Female

DRUGS (2)
  1. VANCOMYCIN [Suspect]
     Active Substance: VANCOMYCIN
     Indication: RESPIRATORY TRACT INFECTION
     Dosage: UNK
     Route: 042
  2. MEROPENEM. [Suspect]
     Active Substance: MEROPENEM
     Indication: RESPIRATORY TRACT INFECTION
     Dosage: UNK
     Route: 042

REACTIONS (6)
  - Type IV hypersensitivity reaction [Recovered/Resolved]
  - Lymphocytic infiltration [Recovered/Resolved]
  - Skin haemorrhage [Recovered/Resolved]
  - Palpable purpura [Recovered/Resolved]
  - Drug eruption [Recovered/Resolved]
  - Epidermal necrosis [Recovered/Resolved]
